FAERS Safety Report 5948673-6 (Version None)
Quarter: 2008Q4

REPORT INFORMATION
  Report Type: 
  Country: None (occurrence: None)
  Receive Date: 20081107
  Receipt Date: 20081022
  Transmission Date: 20090506
  Serious: Yes (Hospitalization)
  Sender: FDA-Public Use
  Company Number: 002#2#2008-00710

PATIENT
  Age: 75 Year
  Sex: Male
  Weight: 97.0698 kg

DRUGS (2)
  1. PARCOPA [Suspect]
     Indication: PARKINSON'S DISEASE
     Dosage: ORAL
     Route: 048
  2. COMTAN [Suspect]
     Indication: DRUG USE FOR UNKNOWN INDICATION

REACTIONS (4)
  - CONFUSIONAL STATE [None]
  - CONTUSION [None]
  - FALL [None]
  - HAEMATOMA [None]
